FAERS Safety Report 6855993-X (Version None)
Quarter: 2010Q3

REPORT INFORMATION
  Report Type: 
  Country: None (occurrence: None)
  Receive Date: 20100719
  Receipt Date: 20100625
  Transmission Date: 20110219
  Serious: Yes (Other)
  Sender: FDA-Public Use
  Company Number: BE-SANOFI-AVENTIS-2010SA040335

PATIENT
  Age: 49 Year
  Sex: Female

DRUGS (15)
  1. FLUDARABINE PHOSPHATE [Suspect]
     Route: 065
     Dates: start: 20100507
  2. CLOFARABINE [Suspect]
     Route: 065
     Dates: start: 20100426
  3. BUSULPHAN [Suspect]
     Route: 065
     Dates: start: 20100507
  4. IDARUBICIN HCL [Concomitant]
  5. ARA-C [Concomitant]
  6. CYTARABINE [Concomitant]
     Dates: start: 20100423, end: 20100429
  7. OMEPRAZOLE [Concomitant]
  8. XANAX [Concomitant]
  9. ORGAMETRIL [Concomitant]
  10. NOXAFIL [Concomitant]
  11. PURINETHOL [Concomitant]
  12. HYDREA [Concomitant]
  13. ZOLPIDEM [Concomitant]
  14. SYNGEL [Concomitant]
  15. MOTILIUM [Concomitant]

REACTIONS (6)
  - CHOLESTASIS [None]
  - ENTEROBACTER BACTERAEMIA [None]
  - ENTEROCOCCAL BACTERAEMIA [None]
  - GUILLAIN-BARRE SYNDROME [None]
  - HYPERBILIRUBINAEMIA [None]
  - TOXIC ENCEPHALOPATHY [None]
